FAERS Safety Report 13232565 (Version 1)
Quarter: 2017Q1

REPORT INFORMATION
  Report Type: Spontaneous
  Country: US (occurrence: US)
  Receive Date: 20170214
  Receipt Date: 20170214
  Transmission Date: 20170428
  Serious: Yes (Other)
  Sender: FDA-Public Use
  Company Number: US-009507513-1702USA005603

PATIENT
  Age: 19 Year
  Sex: Female
  Weight: 86.17 kg

DRUGS (2)
  1. NEXPLANON [Suspect]
     Active Substance: ETONOGESTREL
     Indication: CONTRACEPTION
     Dosage: 1 IMPLANT, EVERY 4 YEARS (REPORTED AS 4 YEAR IMPLANT)
     Route: 059
     Dates: start: 20161102
  2. DIAMOX SEQUELS [Concomitant]
     Active Substance: ACETAZOLAMIDE

REACTIONS (4)
  - Product use issue [Unknown]
  - Menstruation delayed [Not Recovered/Not Resolved]
  - Visual acuity reduced [Unknown]
  - Benign intracranial hypertension [Unknown]

NARRATIVE: CASE EVENT DATE: 20161216
